FAERS Safety Report 10332027 (Version 2)
Quarter: 2014Q3

REPORT INFORMATION
  Report Type: Spontaneous
  Country: TR (occurrence: TR)
  Receive Date: 20140722
  Receipt Date: 20140731
  Transmission Date: 20150326
  Serious: Yes (Hospitalization, Other)
  Sender: FDA-Public Use
  Company Number: TR-PFIZER INC-2014200898

PATIENT
  Age: 47 Year
  Sex: Male
  Weight: 94 kg

DRUGS (6)
  1. DELIX [Concomitant]
     Active Substance: RAMIPRIL
     Indication: HYPERTENSION
     Dosage: 2.5 MG, DAILY
     Route: 048
     Dates: start: 20140510
  2. BELOC ZOK [Concomitant]
     Active Substance: METOPROLOL SUCCINATE
     Indication: ARRHYTHMIA
     Dosage: 50 MG, 1X/DAY
     Route: 048
     Dates: start: 20140515
  3. EFFIENT [Suspect]
     Active Substance: PRASUGREL HYDROCHLORIDE
     Indication: THROMBOSIS PROPHYLAXIS
     Dosage: 10 MG, UNK
     Dates: start: 20140516, end: 20140604
  4. CHAMPIX [Suspect]
     Active Substance: VARENICLINE TARTRATE
     Indication: SMOKING CESSATION THERAPY
     Dosage: UNK, 2X/DAY
     Route: 048
     Dates: start: 20140528, end: 20140613
  5. KARUM [Concomitant]
     Indication: ANTICOAGULANT THERAPY
     Dosage: UNK, 1X/DAY
     Route: 048
     Dates: start: 20140604
  6. GLANGE [Concomitant]
     Indication: BLOOD GLUCOSE
     Dosage: 1000 MG, DAILY
     Route: 048
     Dates: start: 20140515

REACTIONS (1)
  - Renal haemorrhage [Recovered/Resolved]

NARRATIVE: CASE EVENT DATE: 20140610
